FAERS Safety Report 21961997 (Version 1)
Quarter: 2023Q1

REPORT INFORMATION
  Report Type: Spontaneous
  Country: US (occurrence: None)
  Receive Date: 20230204
  Receipt Date: 20230204
  Transmission Date: 20230418
  Serious: Yes (Disabling, Other)
  Sender: FDA-Public Use
  Company Number: None

PATIENT
  Age: 55 Year
  Sex: Female
  Weight: 68.4 kg

DRUGS (6)
  1. TIROSINT-SOL [Suspect]
     Active Substance: LEVOTHYROXINE SODIUM
     Indication: Autoimmune thyroiditis
     Dosage: FREQUENCY : EVERY OTHER DAY;?
     Route: 048
  2. LIVALO [Concomitant]
     Active Substance: PITAVASTATIN CALCIUM
  3. VITAMIN D [Concomitant]
     Active Substance: VITAMIN D NOS
  4. ZINC [Concomitant]
     Active Substance: ZINC
  5. C [Concomitant]
  6. Sellenium [Concomitant]

REACTIONS (22)
  - Hair disorder [None]
  - Condition aggravated [None]
  - Tremor [None]
  - Fatigue [None]
  - Headache [None]
  - Nausea [None]
  - Bone pain [None]
  - Joint swelling [None]
  - Bone disorder [None]
  - Mental disorder [None]
  - Mood swings [None]
  - Agitation [None]
  - Crying [None]
  - Inflammation [None]
  - Gastrointestinal inflammation [None]
  - Arthritis [None]
  - Swelling face [None]
  - Pharyngeal swelling [None]
  - Ultrasound thyroid abnormal [None]
  - Dry skin [None]
  - Gastrointestinal motility disorder [None]
  - Lipids increased [None]
